FAERS Safety Report 14453173 (Version 1)
Quarter: 2018Q1

REPORT INFORMATION
  Report Type: Spontaneous
  Country: ES (occurrence: ES)
  Receive Date: 20180129
  Receipt Date: 20180129
  Transmission Date: 20180509
  Serious: Yes (Other)
  Sender: FDA-Public Use
  Company Number: ES-ASTELLAS-2018US004959

PATIENT
  Sex: Male

DRUGS (4)
  1. XTANDI [Suspect]
     Active Substance: ENZALUTAMIDE
     Route: 065
     Dates: start: 20161215
  2. XTANDI [Suspect]
     Active Substance: ENZALUTAMIDE
     Route: 065
     Dates: start: 201706
  3. DOCETAXEL. [Concomitant]
     Active Substance: DOCETAXEL
     Indication: PRODUCT USED FOR UNKNOWN INDICATION
     Dosage: UNK UNK, UNKNOWN FREQ.
     Route: 065
     Dates: end: 201509
  4. XTANDI [Suspect]
     Active Substance: ENZALUTAMIDE
     Indication: HORMONE-REFRACTORY PROSTATE CANCER
     Route: 065
     Dates: start: 20151105

REACTIONS (9)
  - Hyperglycaemia [Unknown]
  - Fatigue [Unknown]
  - Lumbar vertebral fracture [Unknown]
  - Prostatic specific antigen increased [Unknown]
  - Hypercholesterolaemia [Unknown]
  - Decreased appetite [Unknown]
  - Fall [Unknown]
  - Urinary retention [Unknown]
  - Asthenia [Unknown]

NARRATIVE: CASE EVENT DATE: 201703
